FAERS Safety Report 4933530-4 (Version None)
Quarter: 2006Q1

REPORT INFORMATION
  Report Type: 
  Country: None (occurrence: None)
  Receive Date: 20060306
  Receipt Date: 20060222
  Transmission Date: 20060701
  Serious: Yes (Hospitalization)
  Sender: FDA-Public Use
  Company Number: PHHO2006JP03405

PATIENT
  Sex: Male

DRUGS (15)
  1. SANDIMMUNE [Suspect]
     Indication: NEPHROTIC SYNDROME
     Dosage: 125MG DAILY DOSE
     Route: 048
     Dates: start: 19960710, end: 19970624
  2. SANDIMMUNE [Suspect]
     Dosage: 150MG DAILY DOSE
     Route: 048
     Dates: start: 19970625, end: 19971112
  3. SANDIMMUNE [Suspect]
     Dosage: 200 MG DAILY
     Route: 048
     Dates: start: 19971113, end: 19980903
  4. SANDIMMUNE [Suspect]
     Dosage: 150 MG DAILY
     Route: 048
     Dates: start: 19980904
  5. PREDONINE [Suspect]
  6. COMELIAN [Concomitant]
     Dates: start: 19930517
  7. MEVALOTIN [Concomitant]
     Dates: start: 19930517
  8. ZANTAC [Concomitant]
     Dates: start: 19950427
  9. MEXITIL [Concomitant]
  10. SELBEX [Concomitant]
  11. KELNAC [Concomitant]
  12. MARZULENE [Concomitant]
  13. NORVASC [Concomitant]
  14. PANALDINE [Concomitant]
  15. ADECUT [Concomitant]

REACTIONS (10)
  - ARTERIOSCLEROSIS [None]
  - BRONCHITIS ACUTE [None]
  - C-REACTIVE PROTEIN INCREASED [None]
  - CEREBRAL INFARCTION [None]
  - CEREBROVASCULAR DISORDER [None]
  - CHILLS [None]
  - CONDITION AGGRAVATED [None]
  - PHARYNGOLARYNGEAL PAIN [None]
  - PYREXIA [None]
  - WHITE BLOOD CELL COUNT INCREASED [None]
